FAERS Safety Report 7107704-0 (Version None)
Quarter: 2010Q4

REPORT INFORMATION
  Report Type: 
  Country: None (occurrence: None)
  Receive Date: 20101117
  Receipt Date: 20101112
  Transmission Date: 20110411
  Serious: Yes (Other)
  Sender: FDA-Public Use
  Company Number: US-BRISTOL-MYERS SQUIBB COMPANY-15383979

PATIENT
  Age: 54 Year
  Sex: Female
  Weight: 67 kg

DRUGS (4)
  1. ORENCIA [Suspect]
     Dosage: DURATION:OVER A YEAR  HELD IN THE PAST FOR 3 MONTHS
  2. METHOTREXATE [Concomitant]
  3. SYMBICORT [Concomitant]
  4. STEROIDS [Concomitant]

REACTIONS (3)
  - BRONCHIAL DISORDER [None]
  - PYREXIA [None]
  - UPPER RESPIRATORY TRACT INFECTION [None]
